FAERS Safety Report 6373937-4 (Version None)
Quarter: 2009Q3

REPORT INFORMATION
  Report Type: 
  Country: None (occurrence: None)
  Receive Date: 20090924
  Receipt Date: 20090713
  Transmission Date: 20100115
  Serious: No
  Sender: FDA-Public Use
  Company Number: US-ASTRAZENECA-2009UW13429

PATIENT
  Age: 34 Year
  Sex: Male
  Weight: 136.1 kg

DRUGS (6)
  1. SEROQUEL [Suspect]
     Indication: POST-TRAUMATIC STRESS DISORDER
     Dosage: 25 MG TO 800 MG
     Route: 048
     Dates: start: 20010801, end: 20050101
  2. ZYPREXA [Concomitant]
     Dates: start: 20060101
  3. XENICAL [Concomitant]
     Dates: start: 20030101
  4. GEODON [Concomitant]
     Dates: start: 20080101
  5. WELLBUTRIN [Concomitant]
     Dates: start: 20070101
  6. XANAX [Concomitant]
     Dates: start: 20050101

REACTIONS (3)
  - BLOOD CHOLESTEROL INCREASED [None]
  - OBESITY [None]
  - TYPE 2 DIABETES MELLITUS [None]
